FAERS Safety Report 7402712-4 (Version None)
Quarter: 2011Q2

REPORT INFORMATION
  Report Type: 
  Country: None (occurrence: None)
  Receive Date: 20110408
  Receipt Date: 20110330
  Transmission Date: 20111010
  Serious: Yes (Death, Hospitalization)
  Sender: FDA-Public Use
  Company Number: CO-ROCHE-755325

PATIENT
  Sex: Male

DRUGS (4)
  1. CALCIO [Concomitant]
     Dosage: FREQUENCY DAILY
     Route: 048
  2. MIRCERA [Suspect]
     Route: 058
     Dates: start: 20100828, end: 20110117
  3. AMLODIPINO [Concomitant]
     Dosage: FREQUENCY DAILY
     Route: 048
  4. LOSARTAN POTASSIUM [Concomitant]
     Dosage: FREQUENCY : DAILY
     Route: 048

REACTIONS (2)
  - DYSPNOEA [None]
  - CARDIOPULMONARY FAILURE [None]
